FAERS Safety Report 24544138 (Version 2)
Quarter: 2024Q4

REPORT INFORMATION
  Report Type: Spontaneous
  Country: FR (occurrence: FR)
  Receive Date: 20241024
  Receipt Date: 20241024
  Transmission Date: 20250115
  Serious: Yes (Hospitalization)
  Sender: PFIZER
  Company Number: None

PATIENT
  Age: 43 Year
  Sex: Female
  Weight: 86 kg

DRUGS (13)
  1. FILGRASTIM [Suspect]
     Active Substance: FILGRASTIM
     Indication: Agranulocytosis
     Dosage: 1 DF, 1X/DAY
     Route: 042
     Dates: start: 20240911, end: 20240913
  2. PIPERACILLIN SODIUM\TAZOBACTAM SODIUM [Suspect]
     Active Substance: PIPERACILLIN SODIUM\TAZOBACTAM SODIUM
     Indication: Agranulocytosis
     Dosage: 16 G, 1X/DAY
     Route: 042
     Dates: start: 20240904, end: 20240919
  3. ACETAMINOPHEN [Suspect]
     Active Substance: ACETAMINOPHEN
     Indication: Angina pectoris
     Dosage: FREQ:6 H;SI BESOIN
     Route: 042
     Dates: start: 20240904, end: 20240923
  4. ACETAMINOPHEN [Suspect]
     Active Substance: ACETAMINOPHEN
     Dosage: FREQ:6 H;SI BESOIN
     Route: 048
     Dates: start: 20240924, end: 20240928
  5. NEFOPAM [Suspect]
     Active Substance: NEFOPAM
     Indication: Angina pectoris
     Dosage: 120 MG, 1X/DAY
     Route: 042
     Dates: start: 20240907, end: 20240918
  6. ENOXAPARIN SODIUM [Suspect]
     Active Substance: ENOXAPARIN SODIUM
     Indication: Thrombosis prophylaxis
     Dosage: 0.4 ML, 1X/DAY
     Route: 058
     Dates: start: 20240906, end: 20241003
  7. MORPHINE [Suspect]
     Active Substance: MORPHINE
     Indication: Angina pectoris
     Dosage: 10 MG, 1X/DAY
     Route: 051
     Dates: start: 20240906, end: 20240923
  8. CYANOCOBALAMIN [Suspect]
     Active Substance: CYANOCOBALAMIN
     Indication: Vitamin B12 deficiency
     Dosage: 1 DF, 1X/DAY
     Route: 030
     Dates: start: 20240919, end: 20240922
  9. PHYTONADIONE [Suspect]
     Active Substance: PHYTONADIONE
     Indication: Vitamin K deficiency
     Dosage: 10 MG, SINGLE
     Route: 048
     Dates: start: 20240919, end: 20240919
  10. IOBITRIDOL [Suspect]
     Active Substance: IOBITRIDOL
     Indication: Imaging procedure
     Dosage: 3 DF
     Route: 042
     Dates: start: 20240905, end: 20240913
  11. ROPIVACAINE [Suspect]
     Active Substance: ROPIVACAINE
     Indication: Anaesthesia
     Dosage: UNK
     Route: 042
     Dates: start: 20240920, end: 20240920
  12. VANCOMYCIN HYDROCHLORIDE [Suspect]
     Active Substance: VANCOMYCIN HYDROCHLORIDE
     Indication: Agranulocytosis
     Dosage: 3 G, 1X/DAY
     Route: 042
     Dates: start: 20240912, end: 20240918
  13. CIPROFLOXACIN [Suspect]
     Active Substance: CIPROFLOXACIN
     Indication: Agranulocytosis
     Dosage: 800 MG, 1X/DAY
     Route: 042
     Dates: start: 20240912, end: 20240918

REACTIONS (2)
  - Symmetrical drug-related intertriginous and flexural exanthema [Recovered/Resolved]
  - Off label use [Unknown]

NARRATIVE: CASE EVENT DATE: 20240911
